FAERS Safety Report 16967084 (Version 2)
Quarter: 2019Q4

REPORT INFORMATION
  Report Type: Spontaneous
  Country: US (occurrence: US)
  Receive Date: 20191028
  Receipt Date: 20191114
  Transmission Date: 20200122
  Serious: Yes (Other)
  Sender: FDA-Public Use
  Company Number: US-JNJFOC-20191037501

PATIENT
  Sex: Female
  Weight: 98 kg

DRUGS (4)
  1. SIMPONI ARIA [Suspect]
     Active Substance: GOLIMUMAB
     Route: 042
     Dates: start: 20190827
  2. SIMPONI ARIA [Suspect]
     Active Substance: GOLIMUMAB
     Route: 042
     Dates: start: 20191024
  3. METHOTREXATE. [Concomitant]
     Active Substance: METHOTREXATE
     Indication: RHEUMATOID ARTHRITIS
     Dosage: WEEKLY SINCE SEVERAL YEARS (DOSE VARIES)
     Route: 065
  4. SIMPONI ARIA [Suspect]
     Active Substance: GOLIMUMAB
     Indication: RHEUMATOID ARTHRITIS
     Route: 042
     Dates: start: 20190730

REACTIONS (2)
  - Rheumatoid arthritis [Unknown]
  - Rash [Recovered/Resolved]

NARRATIVE: CASE EVENT DATE: 2019
